FAERS Safety Report 5044277-0 (Version None)
Quarter: 2006Q2

REPORT INFORMATION
  Report Type: 
  Country: None (occurrence: None)
  Receive Date: 20060629
  Receipt Date: 20060620
  Transmission Date: 20061013
  Serious: Yes (Other)
  Sender: FDA-Public Use
  Company Number: 2006078606

PATIENT
  Age: 58 Year
  Sex: Female
  Weight: 62 kg

DRUGS (4)
  1. DILANTIN [Suspect]
     Indication: CONVULSION
     Dosage: 400 MG (200 MG, 2 IN 1 D)
  2. DUCENE        (DIAZEPAM) [Concomitant]
  3. MICARDIS [Concomitant]
  4. EPILIM (VALPROATE SODIUM) [Concomitant]

REACTIONS (5)
  - ANKLE FRACTURE [None]
  - CONVULSION [None]
  - DRUG LEVEL FLUCTUATING [None]
  - VERTIGO [None]
  - WEIGHT DECREASED [None]
